FAERS Safety Report 14724031 (Version 1)
Quarter: 2018Q2

REPORT INFORMATION
  Report Type: Report from Study
  Country: BR (occurrence: BR)
  Receive Date: 20180405
  Receipt Date: 20180405
  Transmission Date: 20180711
  Serious: Yes (Other)
  Sender: FDA-Public Use
  Company Number: BR-TEVA-2018-BR-877231

PATIENT
  Sex: Female

DRUGS (4)
  1. AZATHIOPRINE. [Suspect]
     Active Substance: AZATHIOPRINE
     Indication: INCLUSION BODY MYOSITIS
     Route: 065
  2. CYCLOSPORINE. [Suspect]
     Active Substance: CYCLOSPORINE
     Indication: INCLUSION BODY MYOSITIS
     Route: 065
  3. PREDNISONE. [Suspect]
     Active Substance: PREDNISONE
     Indication: INCLUSION BODY MYOSITIS
     Dosage: 40 MG/DAY
     Route: 065
  4. METHOTREXATE. [Suspect]
     Active Substance: METHOTREXATE
     Indication: INCLUSION BODY MYOSITIS
     Route: 065

REACTIONS (4)
  - Pancytopenia [Unknown]
  - Cushing^s syndrome [Unknown]
  - Gastric disorder [Unknown]
  - Vomiting [Unknown]
